FAERS Safety Report 8590390-0 (Version None)
Quarter: 2012Q3

REPORT INFORMATION
  Report Type: 
  Country: None (occurrence: None)
  Receive Date: 20120813
  Receipt Date: 20120803
  Transmission Date: 20120928
  Serious: Yes (Hospitalization)
  Sender: FDA-Public Use
  Company Number: US-JNJFOC-20120803421

PATIENT
  Age: 30 Year
  Sex: Female
  Weight: 106.14 kg

DRUGS (3)
  1. INVEGA SUSTENNA [Suspect]
     Indication: SCHIZOPHRENIA, UNDIFFERENTIATED TYPE
     Dosage: SECOND INITIATION DOSE
     Route: 030
  2. PHENTERMINE [Concomitant]
     Indication: WEIGHT DECREASED
     Route: 065
  3. INVEGA SUSTENNA [Suspect]
     Dosage: SECOND INITIATION DOSE
     Route: 030
     Dates: start: 20120101

REACTIONS (3)
  - INCORRECT STORAGE OF DRUG [None]
  - POOR QUALITY DRUG ADMINISTERED [None]
  - SCHIZOPHRENIA [None]
